FAERS Safety Report 4446576-X (Version None)
Quarter: 2004Q3

REPORT INFORMATION
  Report Type: 
  Country: None (occurrence: None)
  Receive Date: 20040908
  Receipt Date: 20040823
  Transmission Date: 20050211
  Serious: Yes (Hospitalization)
  Sender: FDA-Public Use
  Company Number: 177040

PATIENT
  Age: 53 Year
  Sex: Female
  Weight: 74.8435 kg

DRUGS (4)
  1. AVONEX [Suspect]
     Indication: MULTIPLE SCLEROSIS
     Dosage: 30 MCG QW IM
     Route: 030
     Dates: start: 19960101
  2. CALCIUM [Concomitant]
  3. NEURONTIN [Concomitant]
  4. DARVOCET-N 100 [Concomitant]

REACTIONS (3)
  - ASTHENIA [None]
  - FALL [None]
  - FEMUR FRACTURE [None]
